FAERS Safety Report 5714720-X (Version None)
Quarter: 2008Q2

REPORT INFORMATION
  Report Type: 
  Country: None (occurrence: None)
  Receive Date: 20080423
  Receipt Date: 19860113
  Transmission Date: 20081010
  Serious: Yes (Death)
  Sender: FDA-Public Use
  Company Number: US-ROCHE-850201595001

PATIENT
  Age: 55 Year
  Sex: Female

DRUGS (5)
  1. CEFTRIAXONE SODIUM [Suspect]
     Indication: DRUG USE FOR UNKNOWN INDICATION
     Route: 065
  2. TYLENOL [Concomitant]
  3. HUMAN INSULIN [Concomitant]
  4. FLAGYL [Concomitant]
  5. DOPAMINE HCL [Concomitant]

REACTIONS (1)
  - DEATH [None]
